FAERS Safety Report 21501111 (Version 1)
Quarter: 2022Q4

REPORT INFORMATION
  Report Type: Report from Study
  Country: US (occurrence: US)
  Receive Date: 20221025
  Receipt Date: 20221025
  Transmission Date: 20230112
  Serious: No
  Sender: FDA-Public Use
  Company Number: US-ABBVIE-4174639

PATIENT
  Sex: Female

DRUGS (1)
  1. SKYRIZI [Suspect]
     Active Substance: RISANKIZUMAB-RZAA
     Indication: Psoriasis
     Dosage: 150 MILLIGRAM; THE DRUG START DATE WAS18 MAY 2022.
     Route: 058

REACTIONS (3)
  - Pruritus [Unknown]
  - Erythema [Recovering/Resolving]
  - Pain [Recovering/Resolving]
